FAERS Safety Report 15326652 (Version 2)
Quarter: 2018Q3

REPORT INFORMATION
  Report Type: Report from Study
  Country: US (occurrence: US)
  Receive Date: 20180828
  Receipt Date: 20180912
  Transmission Date: 20181010
  Serious: Yes (Other)
  Sender: FDA-Public Use
  Company Number: PHHY2018US081455

PATIENT
  Age: 21 Year
  Sex: Female

DRUGS (1)
  1. GILENYA [Suspect]
     Active Substance: FINGOLIMOD HYDROCHLORIDE
     Indication: MULTIPLE SCLEROSIS
     Dosage: 0.5 MG, QD
     Route: 048
     Dates: start: 20180515

REACTIONS (7)
  - Dysphonia [Unknown]
  - Chest discomfort [Unknown]
  - Cough [Unknown]
  - Fatigue [Unknown]
  - Nausea [Unknown]
  - Pneumonia [Unknown]
  - Productive cough [Unknown]

NARRATIVE: CASE EVENT DATE: 20180515
